FAERS Safety Report 8325348-X (Version None)
Quarter: 2012Q2

REPORT INFORMATION
  Report Type: 
  Country: None (occurrence: None)
  Receive Date: 20120501
  Receipt Date: 20120420
  Transmission Date: 20120825
  Serious: Yes (Other)
  Sender: FDA-Public Use
  Company Number: JP-VERTEX PHARMACEUTICALS INC.-AE-2012-003085

PATIENT
  Age: 45 Year
  Sex: Male

DRUGS (15)
  1. PEG-INTRON [Concomitant]
     Route: 051
  2. TELAVIC (TELAPREVIR) [Suspect]
     Route: 048
     Dates: start: 20120116
  3. REBETOL [Concomitant]
     Indication: HEPATITIS C
     Route: 048
     Dates: start: 20120110, end: 20120212
  4. FEROTYM [Concomitant]
     Route: 048
  5. ALENAPION [Concomitant]
     Route: 048
  6. TELAVIC (TELAPREVIR) [Suspect]
     Indication: HEPATITIS C
     Route: 048
     Dates: start: 20120110, end: 20120113
  7. PEG-INTRON [Concomitant]
     Indication: HEPATITIS C
     Route: 051
     Dates: start: 20120110, end: 20120130
  8. SINGULAIR [Concomitant]
     Route: 048
  9. REBETOL [Concomitant]
     Route: 048
     Dates: start: 20120213, end: 20120312
  10. PEG-INTRON [Concomitant]
     Route: 051
     Dates: start: 20120206
  11. LIVALO [Concomitant]
     Route: 048
     Dates: start: 20120402
  12. CLARITIN REDITABS [Concomitant]
     Route: 048
  13. REBETOL [Concomitant]
     Route: 048
     Dates: start: 20120313
  14. LIVALO [Concomitant]
     Route: 048
     Dates: end: 20120113
  15. EPADEL S [Concomitant]
     Route: 048

REACTIONS (4)
  - RASH [None]
  - RENAL DISORDER [None]
  - ANAEMIA [None]
  - PLATELET COUNT DECREASED [None]
